FAERS Safety Report 8523369-5 (Version None)
Quarter: 2012Q3

REPORT INFORMATION
  Report Type: 
  Country: None (occurrence: None)
  Receive Date: 20120713
  Receipt Date: 20120713
  Transmission Date: 20120928
  Serious: Yes (Hospitalization)
  Sender: FDA-Public Use
  Company Number: None

PATIENT
  Age: 66 Year
  Sex: Male
  Weight: 89.3 kg

DRUGS (2)
  1. QUETIAPINE [Suspect]
     Dates: start: 20110307, end: 20111114
  2. GABAPENTIN [Suspect]
     Dates: start: 20110816, end: 20111114

REACTIONS (2)
  - CONFUSIONAL STATE [None]
  - FALL [None]
